FAERS Safety Report 8356752-1 (Version None)
Quarter: 2012Q2

REPORT INFORMATION
  Report Type: 
  Country: None (occurrence: None)
  Receive Date: 20120514
  Receipt Date: 20120509
  Transmission Date: 20120825
  Serious: Yes (Other)
  Sender: FDA-Public Use
  Company Number: US-AMGEN-USASP2011061698

PATIENT
  Age: 60 Year
  Sex: Male
  Weight: 83.5 kg

DRUGS (21)
  1. VASOTEC [Concomitant]
  2. LEVOTHYROXINE SODIUM [Concomitant]
  3. LIDOCAINE [Concomitant]
  4. IRON [Concomitant]
  5. EPOGEN [Suspect]
     Indication: RENAL FAILURE CHRONIC
     Dosage: UNK
  6. PRAVASTATIN [Concomitant]
  7. OMEPRAZOLE [Concomitant]
  8. FOLIC ACID [Concomitant]
  9. NEPHROVITE [Concomitant]
  10. SENSIPAR [Suspect]
     Indication: HYPERPARATHYROIDISM SECONDARY
     Dosage: 30 MG, QD
     Route: 048
     Dates: start: 20090821
  11. NORVASC [Concomitant]
  12. NITROGLYCERIN [Concomitant]
  13. PHENERGAN [Concomitant]
  14. RENVELA [Concomitant]
  15. METOPROLOL TARTRATE [Concomitant]
  16. DOCUSATE [Concomitant]
  17. EPOGEN [Suspect]
  18. HEPARIN [Concomitant]
  19. BRINZOLAMIDE [Concomitant]
  20. SEROQUEL [Concomitant]
  21. HECTOROL [Concomitant]

REACTIONS (6)
  - DYSPNOEA [None]
  - BLOOD CALCIUM INCREASED [None]
  - BLOOD PARATHYROID HORMONE INCREASED [None]
  - ANAPHYLACTIC REACTION [None]
  - SWOLLEN TONGUE [None]
  - PHARYNGEAL OEDEMA [None]
